FAERS Safety Report 20713159 (Version 1)
Quarter: 2022Q2

REPORT INFORMATION
  Report Type: Spontaneous
  Country: US (occurrence: US)
  Receive Date: 20220415
  Receipt Date: 20220415
  Transmission Date: 20220721
  Serious: No
  Sender: FDA-Public Use
  Company Number: US-ASPEN-GLO2022US001931

PATIENT

DRUGS (2)
  1. BUSULFAN [Suspect]
     Active Substance: BUSULFAN
     Indication: Sickle cell anaemia
     Dosage: 2 MG/KG
     Route: 065
  2. BUSULFAN [Suspect]
     Active Substance: BUSULFAN
     Indication: Bone marrow conditioning regimen

REACTIONS (1)
  - Off label use [Unknown]
